FAERS Safety Report 21989760 (Version 1)
Quarter: 2023Q1

REPORT INFORMATION
  Report Type: Spontaneous
  Country: JP (occurrence: JP)
  Receive Date: 20230214
  Receipt Date: 20230214
  Transmission Date: 20230418
  Serious: Yes (Hospitalization, Other)
  Sender: FDA-Public Use
  Company Number: JP-PFIZER INC-PV202300016994

PATIENT
  Age: 69 Year
  Sex: Male

DRUGS (6)
  1. MEROPENEM [Suspect]
     Active Substance: MEROPENEM
     Indication: Brain abscess
     Dosage: 2 G, 3X/DAY
     Dates: start: 2022, end: 2022
  2. MEROPENEM [Suspect]
     Active Substance: MEROPENEM
     Indication: Meningitis bacterial
     Dosage: 1 G, 3X/DAY
     Dates: start: 2022, end: 2022
  3. VANCOMYCIN [Suspect]
     Active Substance: VANCOMYCIN
     Indication: Brain abscess
     Dosage: 1 G, 3X/DAY
     Dates: start: 2022, end: 2022
  4. VANCOMYCIN [Suspect]
     Active Substance: VANCOMYCIN
     Indication: Meningitis bacterial
     Dosage: 0.5 G, 3X/DAY
     Dates: start: 2022, end: 2022
  5. DEXAMETHASONE [Concomitant]
     Active Substance: DEXAMETHASONE
     Indication: Brain abscess
     Dosage: 10 MG, 4X/DAY
     Route: 042
     Dates: start: 2022, end: 2022
  6. DEXAMETHASONE [Concomitant]
     Active Substance: DEXAMETHASONE
     Indication: Meningitis bacterial

REACTIONS (1)
  - Liver injury [Recovering/Resolving]

NARRATIVE: CASE EVENT DATE: 20220101
